FAERS Safety Report 5292198-0 (Version None)
Quarter: 2007Q2

REPORT INFORMATION
  Report Type: 
  Country: None (occurrence: None)
  Receive Date: 20070403
  Receipt Date: 20070322
  Transmission Date: 20071010
  Serious: Yes (Death)
  Sender: FDA-Public Use
  Company Number: 238845

PATIENT
  Age: 65 Year
  Sex: Male

DRUGS (1)
  1. MABTHERA (RITUXIMAB) CONCENTATE FOR SOLUTION FOR INFUSION [Suspect]
     Indication: NON-HODGKIN'S LYMPHOMA
     Dosage: 375 MG/M2, 1/WEEK

REACTIONS (4)
  - CARDIOPULMONARY FAILURE [None]
  - NECROTISING FASCIITIS [None]
  - PYREXIA [None]
  - SEPSIS [None]
